FAERS Safety Report 9602838 (Version 1)
Quarter: 2013Q4

REPORT INFORMATION
  Report Type: Spontaneous
  Country: US (occurrence: US)
  Receive Date: 20131007
  Receipt Date: 20131007
  Transmission Date: 20140711
  Serious: No
  Sender: FDA-Public Use
  Company Number: US-009507513-1310USA002397

PATIENT
  Age: 54 Year
  Sex: Female
  Weight: 50.79 kg

DRUGS (3)
  1. MIRALAX [Suspect]
     Indication: CONSTIPATION
     Dosage: UNK, QOD
     Route: 048
     Dates: start: 201304
  2. TOPRAL [Concomitant]
     Indication: HYPERTENSION
     Dosage: UNK, UNKNOWN
  3. VAGIFEM [Concomitant]
     Indication: MENOPAUSE
     Dosage: UNK, UNKNOWN

REACTIONS (3)
  - Inappropriate schedule of drug administration [Unknown]
  - Incorrect drug administration duration [Unknown]
  - Product quality issue [Unknown]
